FAERS Safety Report 13680188 (Version 1)
Quarter: 2017Q2

REPORT INFORMATION
  Report Type: Spontaneous
  Country: US (occurrence: US)
  Receive Date: 20170622
  Receipt Date: 20170622
  Transmission Date: 20170830
  Serious: Yes (Hospitalization)
  Sender: FDA-Public Use
  Company Number: US-ACTELION-A-NJ2017-155465

PATIENT
  Age: 42 Year
  Sex: Female

DRUGS (1)
  1. VELETRI [Suspect]
     Active Substance: EPOPROSTENOL
     Indication: PULMONARY ARTERIAL HYPERTENSION
     Dosage: 26 NG/KG, CONT INFUS
     Route: 042
     Dates: start: 20170418

REACTIONS (2)
  - Catheter site discharge [Recovered/Resolved]
  - Catheter site pruritus [Unknown]

NARRATIVE: CASE EVENT DATE: 20170609
